FAERS Safety Report 6846325-1 (Version None)
Quarter: 2010Q3

REPORT INFORMATION
  Report Type: 
  Country: None (occurrence: None)
  Receive Date: 20100715
  Receipt Date: 20070916
  Transmission Date: 20110219
  Serious: No
  Sender: FDA-Public Use
  Company Number: US-PFIZER INC-2007077375

PATIENT
  Sex: Male
  Weight: 79.4 kg

DRUGS (2)
  1. CHANTIX [Suspect]
     Indication: SMOKING CESSATION THERAPY
     Dates: start: 20070801
  2. BENADRYL [Suspect]
     Indication: SLEEP DISORDER

REACTIONS (3)
  - ABNORMAL DREAMS [None]
  - DIZZINESS [None]
  - INITIAL INSOMNIA [None]
